FAERS Safety Report 7781236-9 (Version None)
Quarter: 2011Q3

REPORT INFORMATION
  Report Type: 
  Country: None (occurrence: None)
  Receive Date: 20110927
  Receipt Date: 20110915
  Transmission Date: 20111222
  Serious: Yes (Death, Other)
  Sender: FDA-Public Use
  Company Number: AT-CELGENEUS-009-50794-11091744

PATIENT
  Age: 66 Year

DRUGS (3)
  1. ONDANSETRON [Concomitant]
     Indication: PROPHYLAXIS
     Route: 048
     Dates: start: 20081022
  2. VIDAZA [Suspect]
     Dosage: 75 MILLIGRAM/SQ. METER
     Route: 058
     Dates: start: 20081022, end: 20100901
  3. VIDAZA [Suspect]

REACTIONS (9)
  - ACUTE MYELOID LEUKAEMIA [None]
  - DEATH [None]
  - PANCYTOPENIA [None]
  - MYELODYSPLASTIC SYNDROME TRANSFORMATION [None]
  - INFECTION [None]
  - DYSPNOEA [None]
  - NEUTROPENIA [None]
  - ANGINA PECTORIS [None]
  - MENTAL DISORDER [None]
